FAERS Safety Report 8458955 (Version 3)
Quarter: 2013Q4

REPORT INFORMATION
  Report Type: Spontaneous
  Country: US (occurrence: US)
  Receive Date: 20120314
  Receipt Date: 20131218
  Transmission Date: 20140711
  Serious: Yes (Hospitalization, Other)
  Sender: FDA-Public Use
  Company Number: US-BAYER-2012-023909

PATIENT
  Age: 24 Year
  Sex: Female
  Weight: 52 kg

DRUGS (10)
  1. YAZ [Suspect]
     Indication: CONTRACEPTION
     Dosage: UNK
     Dates: start: 200812, end: 200912
  2. YAZ [Suspect]
     Indication: CONTRACEPTION
     Dosage: UNK
     Dates: start: 2009, end: 2009
  3. ADDERALL [Concomitant]
  4. RHINOCORT [Concomitant]
  5. ALBUTEROL [Concomitant]
  6. NEXIUM [Concomitant]
  7. PHENERGAN [Concomitant]
  8. HEPARIN [Concomitant]
     Dosage: UNK
     Dates: start: 20091226
  9. HYDROCODONE/ACETAMINOPHEN [Concomitant]
     Dosage: UNK
     Dates: start: 20091226
  10. ONDANSETRON [Concomitant]
     Dosage: UNK
     Dates: start: 20091228

REACTIONS (9)
  - Gallbladder injury [None]
  - Portal hypertension [None]
  - Cholangitis [None]
  - Cholecystitis [None]
  - Emotional distress [None]
  - Pain [None]
  - General physical health deterioration [None]
  - Anxiety [None]
  - Mental disorder [None]
